FAERS Safety Report 18622336 (Version 1)
Quarter: 2020Q4

REPORT INFORMATION
  Report Type: Report from Study
  Country: FR (occurrence: FR)
  Receive Date: 20201216
  Receipt Date: 20201216
  Transmission Date: 20210114
  Serious: Yes (Death, Life-Threatening, Hospitalization, Other)
  Sender: FDA-Public Use
  Company Number: NVSC2020FR333438

PATIENT

DRUGS (2)
  1. TRAMETINIB [Suspect]
     Active Substance: TRAMETINIB
     Indication: METASTATIC MALIGNANT MELANOMA
     Dosage: UNK
     Route: 048
     Dates: end: 20201008
  2. DABRAFENIB [Suspect]
     Active Substance: DABRAFENIB
     Indication: METASTATIC MALIGNANT MELANOMA
     Dosage: UNK
     Route: 048
     Dates: end: 20201008

REACTIONS (5)
  - Metastatic malignant melanoma [Unknown]
  - Death [Fatal]
  - Pain [Unknown]
  - Malignant neoplasm progression [Unknown]
  - General physical condition abnormal [Not Recovered/Not Resolved]

NARRATIVE: CASE EVENT DATE: 20201019
